FAERS Safety Report 9170408 (Version 1)
Quarter: 2013Q1

REPORT INFORMATION
  Report Type: Spontaneous
  Country: US (occurrence: None)
  Receive Date: 20130315
  Receipt Date: 20130315
  Transmission Date: 20140127
  Serious: Yes (Other)
  Sender: FDA-Public Use
  Company Number: None

PATIENT
  Age: 46 Year
  Sex: Female
  Weight: 79.38 kg

DRUGS (1)
  1. NERIUM OLEANDER EXTRACT [Suspect]
     Indication: SKIN DISORDER
     Dates: start: 20120905, end: 20120906

REACTIONS (5)
  - Eye swelling [None]
  - Mass [None]
  - Eyelid disorder [None]
  - Lacrimation increased [None]
  - Feeling hot [None]
